FAERS Safety Report 4415777-9 (Version None)
Quarter: 2004Q2

REPORT INFORMATION
  Report Type: 
  Country: None (occurrence: None)
  Receive Date: 20040618
  Receipt Date: 20040414
  Transmission Date: 20050107
  Serious: Yes (Other)
  Sender: FDA-Public Use
  Company Number: NSADSS2003001751

PATIENT
  Age: 24 Year
  Sex: Female
  Weight: 58.9676 kg

DRUGS (3)
  1. ORTHO EVRA [Suspect]
     Indication: CONTRACEPTION
     Dosage: 1, 3 IN 4 WEEK, TRANSDERMAL
     Route: 062
     Dates: start: 20021031, end: 20030306
  2. PRENATAL VIT (PRENATAL VITAMINS) [Concomitant]
  3. REGLAN [Concomitant]

REACTIONS (7)
  - DRUG EXPOSURE DURING PREGNANCY [None]
  - DYSMENORRHOEA [None]
  - MENSTRUATION IRREGULAR [None]
  - METRORRHAGIA [None]
  - MIGRAINE [None]
  - NAUSEA [None]
  - UNINTENDED PREGNANCY [None]
